FAERS Safety Report 18848526 (Version 1)
Quarter: 2021Q1

REPORT INFORMATION
  Report Type: Report from Study
  Country: ES (occurrence: ES)
  Receive Date: 20210204
  Receipt Date: 20210204
  Transmission Date: 20210419
  Serious: Yes (Other)
  Sender: FDA-Public Use
  Company Number: ES-MYLANLABS-2021M1006887

PATIENT
  Age: 72 Year
  Sex: Male

DRUGS (2)
  1. INSULIN GLARGINE [Suspect]
     Active Substance: INSULIN GLARGINE
     Indication: DIABETES MELLITUS
     Dosage: UNK
     Route: 058
  2. METFORMIN [Suspect]
     Active Substance: METFORMIN HYDROCHLORIDE
     Indication: DIABETES MELLITUS
     Dosage: UNK
     Route: 048

REACTIONS (6)
  - Drug abuse [Unknown]
  - Intentional product use issue [Unknown]
  - Intentional product misuse [Unknown]
  - Diabetes mellitus inadequate control [Recovering/Resolving]
  - Lung neoplasm [Recovering/Resolving]
  - Trigger finger [Recovering/Resolving]
